FAERS Safety Report 8972768 (Version 1)
Quarter: 2012Q4

REPORT INFORMATION
  Report Type: 
  Country: CO (occurrence: CO)
  Receive Date: 20121218
  Receipt Date: 20121218
  Transmission Date: 20130627
  Serious: Yes (Other)
  Sender: FDA-Public Use
  Company Number: PHHY2012CO113356

PATIENT
  Sex: Female
  Weight: 50 kg

DRUGS (4)
  1. ACLASTA [Suspect]
     Dosage: UNK UKN, UNK
     Route: 042
     Dates: start: 20110915
  2. TELMISARTAN [Concomitant]
  3. AMLODIPINE [Concomitant]
  4. CLONIDINE [Concomitant]

REACTIONS (3)
  - Urinary tract infection [Unknown]
  - Blood glucose increased [Unknown]
  - Hypertension [Unknown]
